FAERS Safety Report 19972576 (Version 1)
Quarter: 2021Q4

REPORT INFORMATION
  Report Type: Spontaneous
  Country: IT (occurrence: IT)
  Receive Date: 20211020
  Receipt Date: 20211020
  Transmission Date: 20220303
  Serious: Yes (Other)
  Sender: FDA-Public Use
  Company Number: IT-SA-2021SA340741

PATIENT
  Age: 59 Year
  Sex: Male

DRUGS (9)
  1. AFLIBERCEPT [Suspect]
     Active Substance: AFLIBERCEPT
     Indication: Rectal adenocarcinoma
     Dosage: UNK, QCY
     Dates: start: 2015, end: 2019
  2. AFLIBERCEPT [Suspect]
     Active Substance: AFLIBERCEPT
     Indication: Malignant peritoneal neoplasm
  3. LEUCOVORIN [Concomitant]
     Active Substance: LEUCOVORIN
     Indication: Rectal adenocarcinoma
     Dosage: UNK, QCY
     Dates: start: 2015
  4. LEUCOVORIN [Concomitant]
     Active Substance: LEUCOVORIN
     Indication: Malignant peritoneal neoplasm
  5. FLUOROURACIL [Concomitant]
     Active Substance: FLUOROURACIL
     Indication: Rectal adenocarcinoma
     Dosage: UNK, QCY
     Dates: start: 2015
  6. FLUOROURACIL [Concomitant]
     Active Substance: FLUOROURACIL
     Indication: Malignant peritoneal neoplasm
  7. IRINOTECAN [Concomitant]
     Active Substance: IRINOTECAN
     Indication: Rectal adenocarcinoma
     Dosage: UNK, QCY
     Dates: start: 2015
  8. IRINOTECAN [Concomitant]
     Active Substance: IRINOTECAN
     Indication: Malignant peritoneal neoplasm
  9. PREDNISONE [Concomitant]
     Active Substance: PREDNISONE
     Indication: Renal disorder
     Dosage: UNK UNK, QCY

REACTIONS (3)
  - Renal disorder [Recovering/Resolving]
  - Proteinuria [Recovering/Resolving]
  - Glomerulonephropathy [Recovering/Resolving]
